FAERS Safety Report 20263788 (Version 1)
Quarter: 2021Q4

REPORT INFORMATION
  Report Type: Spontaneous
  Country: IN (occurrence: IN)
  Receive Date: 20211231
  Receipt Date: 20211231
  Transmission Date: 20220303
  Serious: Yes (Other)
  Sender: FDA-Public Use
  Company Number: IN-LUPIN PHARMACEUTICALS INC.-2021-25889

PATIENT
  Age: 44 Year
  Sex: Male

DRUGS (4)
  1. TRAMADOL [Suspect]
     Active Substance: TRAMADOL
     Indication: Pancreatitis acute
     Dosage: 100 MILLIGRAM (CUMULATIVE DOSE FOR 24 HOURS)
     Route: 065
  2. TRAMADOL [Suspect]
     Active Substance: TRAMADOL
     Indication: Abdominal pain
  3. FENTANYL [Suspect]
     Active Substance: FENTANYL
     Indication: Pancreatitis acute
     Dosage: 200 MICROGRAM (CUMULATIVE DOSE FOR 24 HOURS)
     Route: 065
  4. FENTANYL [Suspect]
     Active Substance: FENTANYL
     Indication: Abdominal pain

REACTIONS (1)
  - Drug ineffective [Unknown]
